FAERS Safety Report 9242812 (Version 1)
Quarter: 2013Q2

REPORT INFORMATION
  Report Type: Spontaneous
  Country: US (occurrence: US)
  Receive Date: 20130419
  Receipt Date: 20130419
  Transmission Date: 20140414
  Serious: Yes (Life-Threatening, Hospitalization, Other)
  Sender: FDA-Public Use
  Company Number: US-ELI_LILLY_AND_COMPANY-US201304003264

PATIENT
  Age: 67 Year
  Sex: Male

DRUGS (19)
  1. CYMBALTA [Suspect]
     Indication: DIABETIC NEUROPATHY
     Dosage: 60 MG, BID
     Dates: start: 2010, end: 20130327
  2. LANTUS [Concomitant]
  3. NOVOLOG [Concomitant]
  4. GLIMEPIRIDE [Concomitant]
     Dosage: 4 MG, BID
  5. CRESTOR [Concomitant]
     Dosage: 10 MG, UNK
  6. TRICOR [Concomitant]
     Dosage: 145 MG, UNK
  7. FENOFIBRIC ACID [Concomitant]
     Dosage: 135 MG, UNK
  8. NIASPAN [Concomitant]
     Dosage: 500 MG, QD
  9. HYDROXYZINE [Concomitant]
     Dosage: UNK UNK, PRN
  10. LASIX [Concomitant]
     Dosage: 1 DF, QD
  11. K-DUR [Concomitant]
     Dosage: 1 DF, QD
  12. WARFARIN [Concomitant]
  13. VICODIN [Concomitant]
     Dosage: 1 DF, QD
  14. MOTRIN [Concomitant]
  15. A AND D [Concomitant]
  16. METOPROLOL [Concomitant]
     Dosage: 50 MG, QD
  17. COZAAR [Concomitant]
     Dosage: 50 MG, UNK
  18. VITAMIN D3 [Concomitant]
  19. OMEGA 3 [Concomitant]

REACTIONS (15)
  - Anaphylactic shock [Unknown]
  - Cellulitis [Unknown]
  - Atrial fibrillation [Unknown]
  - Diffuse large B-cell lymphoma [Recovered/Resolved]
  - Cellulitis [Unknown]
  - Blister [Recovered/Resolved]
  - Blister [Recovered/Resolved]
  - Blister [Recovered/Resolved]
  - Blister [Recovered/Resolved]
  - Blister [Recovered/Resolved]
  - Wound secretion [Not Recovered/Not Resolved]
  - Arthropod bite [Unknown]
  - Blood glucose decreased [Unknown]
  - Staphylococcal skin infection [Not Recovered/Not Resolved]
  - Intentional drug misuse [Unknown]
